FAERS Safety Report 24383832 (Version 1)
Quarter: 2024Q4

REPORT INFORMATION
  Report Type: Report from Study
  Country: EG (occurrence: EG)
  Receive Date: 20241001
  Receipt Date: 20241001
  Transmission Date: 20250114
  Serious: No
  Sender: SANDOZ
  Company Number: EG-SANDOZ-SDZ2024EG033363

PATIENT
  Sex: Female

DRUGS (1)
  1. OMNITROPE [Suspect]
     Active Substance: SOMATROPIN
     Indication: Growth hormone deficiency
     Dosage: 1.3 MG DAY
     Route: 058
     Dates: start: 202206

REACTIONS (4)
  - Device breakage [Unknown]
  - Drug dose omission by device [Unknown]
  - Wrong technique in product usage process [Unknown]
  - Wrong technique in device usage process [Unknown]
